FAERS Safety Report 23395625 (Version 1)
Quarter: 2024Q1

REPORT INFORMATION
  Report Type: Report from Study
  Country: CA (occurrence: CA)
  Receive Date: 20240112
  Receipt Date: 20240112
  Transmission Date: 20240410
  Serious: Yes (Other)
  Sender: FDA-Public Use
  Company Number: CA-CELLTRION INC.-2023CA023387

PATIENT

DRUGS (2)
  1. BEVACIZUMAB [Suspect]
     Active Substance: BEVACIZUMAB
     Indication: Glioblastoma
     Dosage: 776.0 MILLIGRAM 1 EVERY 2 WEEKS
     Route: 065
  2. BEVACIZUMAB [Suspect]
     Active Substance: BEVACIZUMAB
     Dosage: 890.0 MILLIGRAM 1 EVERY 3 WEEKS
     Route: 065

REACTIONS (4)
  - Gastrointestinal haemorrhage [Unknown]
  - Weight increased [Unknown]
  - Off label use [Unknown]
  - Intentional product use issue [Unknown]
